FAERS Safety Report 8397422-3 (Version None)
Quarter: 2012Q2

REPORT INFORMATION
  Report Type: 
  Country: None (occurrence: None)
  Receive Date: 20120531
  Receipt Date: 20120524
  Transmission Date: 20120825
  Serious: Yes (Life-Threatening, Hospitalization)
  Sender: FDA-Public Use
  Company Number: FR-ELI_LILLY_AND_COMPANY-FR201205008502

PATIENT
  Sex: Female

DRUGS (11)
  1. HUMALOG [Suspect]
     Dosage: UNK, TID
  2. ATORVASTATIN [Concomitant]
     Dosage: 10 MG, QD
     Dates: start: 20000101
  3. ART [Concomitant]
     Dosage: 50 MG, BID
  4. LANTUS [Concomitant]
     Dosage: 12 IU, QD
     Dates: start: 19910101
  5. LANTUS [Concomitant]
     Dosage: 10 IU, EACH EVENING
  6. ASPIRIN [Concomitant]
     Dosage: 75 MG, QD
     Dates: start: 20000101
  7. HUMALOG [Suspect]
     Dosage: 6 IU, BID
     Route: 058
     Dates: start: 19910101
  8. LEXOMIL [Concomitant]
     Dosage: UNK
  9. ENDOTELON [Concomitant]
     Dosage: UNK
  10. RAMIPRIL [Concomitant]
     Dosage: 2.5 MG, QD
  11. LANSOPRAZOLE [Concomitant]
     Dosage: UNK

REACTIONS (4)
  - HYPERGLYCAEMIA [None]
  - HYPOGLYCAEMIC COMA [None]
  - KETOSIS [None]
  - VISUAL ACUITY REDUCED [None]
